FAERS Safety Report 25967395 (Version 2)
Quarter: 2025Q4

REPORT INFORMATION
  Report Type: Report from Study
  Country: US (occurrence: US)
  Receive Date: 20251028
  Receipt Date: 20251030
  Transmission Date: 20260118
  Serious: No
  Sender: SANDOZ
  Company Number: US-SANDOZ-SDZ2025US079173

PATIENT
  Age: 14 Year
  Sex: Male

DRUGS (2)
  1. OMNITROPE [Suspect]
     Active Substance: SOMATROPIN
     Indication: Short stature
     Dosage: 2.2 MG, QD
     Route: 058
     Dates: start: 20251005
  2. OMNITROPE [Suspect]
     Active Substance: SOMATROPIN
     Indication: Short stature
     Dosage: 2.2 MG, QD
     Route: 058
     Dates: start: 20251005

REACTIONS (3)
  - Incorrect dose administered by device [Unknown]
  - Circumstance or information capable of leading to device use error [Unknown]
  - Device leakage [Unknown]

NARRATIVE: CASE EVENT DATE: 20251008
